FAERS Safety Report 17570841 (Version 2)
Quarter: 2020Q2

REPORT INFORMATION
  Report Type: Spontaneous
  Country: US (occurrence: US)
  Receive Date: 20200323
  Receipt Date: 20200415
  Transmission Date: 20200713
  Serious: No
  Sender: FDA-Public Use
  Company Number: US-BIOGEN-2020BI00851568

PATIENT
  Sex: Female

DRUGS (1)
  1. PLEGRIDY [Suspect]
     Active Substance: PEGINTERFERON BETA-1A
     Indication: MULTIPLE SCLEROSIS
     Route: 058
     Dates: start: 2018

REACTIONS (7)
  - Nail injury [Unknown]
  - Balance disorder [Unknown]
  - Panic attack [Unknown]
  - Injection site rash [Unknown]
  - Depression [Unknown]
  - Fibromyalgia [Unknown]
  - Anxiety [Unknown]
